FAERS Safety Report 8545497-0 (Version None)
Quarter: 2012Q3

REPORT INFORMATION
  Report Type: 
  Country: None (occurrence: None)
  Receive Date: 20120719
  Receipt Date: 20120719
  Transmission Date: 20120928
  Serious: Yes (Hospitalization, Other)
  Sender: FDA-Public Use
  Company Number: None

PATIENT
  Sex: Female

DRUGS (1)
  1. PLAVIX [Suspect]
     Indication: ANGIOPLASTY
     Dosage: 75MG ONCE A DAY PO
     Route: 048
     Dates: start: 20120628, end: 20120713

REACTIONS (4)
  - PRODUCT SUBSTITUTION ISSUE [None]
  - VASCULAR RUPTURE [None]
  - CONTUSION [None]
  - OEDEMA PERIPHERAL [None]
